FAERS Safety Report 17196820 (Version 1)
Quarter: 2019Q4

REPORT INFORMATION
  Report Type: Spontaneous
  Country: US (occurrence: US)
  Receive Date: 20191224
  Receipt Date: 20191224
  Transmission Date: 20200122
  Serious: No
  Sender: FDA-Public Use
  Company Number: US-TEVA-2019-US-1157379

PATIENT
  Sex: Male

DRUGS (2)
  1. MODAFINIL. [Concomitant]
     Active Substance: MODAFINIL
  2. COPAXONE [Suspect]
     Active Substance: GLATIRAMER ACETATE
     Indication: MULTIPLE SCLEROSIS
     Dosage: 20 MG DAILY
     Route: 058
     Dates: start: 20180314

REACTIONS (2)
  - Product dose omission [Unknown]
  - Fall [Unknown]
